FAERS Safety Report 19899349 (Version 1)
Quarter: 2021Q3

REPORT INFORMATION
  Report Type: Spontaneous
  Country: US (occurrence: US)
  Receive Date: 20210929
  Receipt Date: 20210929
  Transmission Date: 20211014
  Serious: Yes (Other)
  Sender: FDA-Public Use
  Company Number: None

PATIENT
  Age: 24 Year
  Sex: Female
  Weight: 63 kg

DRUGS (1)
  1. MICONAZOLE 7 [Suspect]
     Active Substance: MICONAZOLE NITRATE
     Indication: FUNGAL INFECTION
     Dosage: ?          QUANTITY:7 APPLICATOR;?
     Route: 067

REACTIONS (7)
  - Sensitive skin [None]
  - Dizziness [None]
  - Syncope [None]
  - Hypersensitivity [None]
  - Lymph node pain [None]
  - Nausea [None]
  - Lymphadenopathy [None]

NARRATIVE: CASE EVENT DATE: 20210928
